FAERS Safety Report 9775030 (Version 1)
Quarter: 2013Q4

REPORT INFORMATION
  Report Type: Spontaneous
  Country: US (occurrence: US)
  Receive Date: 20131220
  Receipt Date: 20131220
  Transmission Date: 20140711
  Serious: No
  Sender: FDA-Public Use
  Company Number: US-GLAXOSMITHKLINE-A1040441A

PATIENT
  Sex: 0

DRUGS (2)
  1. AVODART [Suspect]
     Indication: BENIGN PROSTATIC HYPERPLASIA
     Dosage: .5MG PER DAY
     Route: 050
     Dates: start: 20130715
  2. NO CONCURRENT MEDICATION [Concomitant]

REACTIONS (2)
  - Wrong technique in drug usage process [Unknown]
  - Incorrect route of drug administration [Unknown]
